FAERS Safety Report 6053347-X (Version None)
Quarter: 2009Q1

REPORT INFORMATION
  Report Type: 
  Country: None (occurrence: None)
  Receive Date: 20090127
  Receipt Date: 20090120
  Transmission Date: 20090719
  Serious: Yes (Hospitalization, Other)
  Sender: FDA-Public Use
  Company Number: US-PURDUE-USA_2009_0036506

PATIENT
  Age: 27 Year
  Sex: Male
  Weight: 63 kg

DRUGS (3)
  1. OXYCODONE HCL [Suspect]
     Indication: FRACTURE
     Dosage: UNK MG, UNK
     Dates: start: 20060101, end: 20060101
  2. ROXICET [Suspect]
     Indication: DRUG ABUSE
     Dosage: UNK, UNK
  3. SUBOXONE [Concomitant]
     Indication: DRUG USE FOR UNKNOWN INDICATION
     Dosage: UNK, UNK

REACTIONS (4)
  - DRUG ABUSE [None]
  - DRUG DEPENDENCE [None]
  - PNEUMONIA PRIMARY ATYPICAL [None]
  - WEIGHT DECREASED [None]
